FAERS Safety Report 14965475 (Version 1)
Quarter: 2018Q2

REPORT INFORMATION
  Report Type: Spontaneous
  Country: US (occurrence: US)
  Receive Date: 20180601
  Receipt Date: 20180601
  Transmission Date: 20180711
  Serious: No
  Sender: FDA-Public Use
  Company Number: US-009507513-1805USA012455

PATIENT
  Age: 70 Year
  Sex: Female

DRUGS (5)
  1. ALPRAZOLAM. [Concomitant]
     Active Substance: ALPRAZOLAM
  2. TRIAMTERENE (+) TRICHLORMETHIAZIDE [Concomitant]
     Dosage: CAPS ONCE DAILY
  3. BELSOMRA [Suspect]
     Active Substance: SUVOREXANT
     Indication: INSOMNIA
     Dosage: 10 MG, NIGHTLY
     Route: 048
     Dates: start: 20180522
  4. VITAMINS (UNSPECIFIED) [Concomitant]
     Active Substance: VITAMINS
  5. TEMAZEPAM. [Concomitant]
     Active Substance: TEMAZEPAM
     Indication: INSOMNIA
     Dosage: 1 CAPSULE ONCE NIGHTLY AS NEEDED

REACTIONS (3)
  - Headache [Recovering/Resolving]
  - Nausea [Not Recovered/Not Resolved]
  - Dyspepsia [Not Recovered/Not Resolved]

NARRATIVE: CASE EVENT DATE: 20180522
